FAERS Safety Report 19077074 (Version 1)
Quarter: 2021Q1

REPORT INFORMATION
  Report Type: Spontaneous
  Country: GB (occurrence: GB)
  Receive Date: 20210331
  Receipt Date: 20210331
  Transmission Date: 20210420
  Serious: Yes (Life-Threatening, Hospitalization, Other)
  Sender: FDA-Public Use
  Company Number: GB-BRISTOL-MYERS SQUIBB COMPANY-BMS-2021-029354

PATIENT
  Age: 17 Year
  Sex: Male
  Weight: 53.1 kg

DRUGS (1)
  1. NIVOLUMAB [Suspect]
     Active Substance: NIVOLUMAB
     Indication: GLIOBLASTOMA MULTIFORME
     Dosage: 240 MILLIGRAM, Q2WK
     Route: 042
     Dates: start: 20210115

REACTIONS (3)
  - Intentional product use issue [Unknown]
  - Seizure [Unknown]
  - Intratumoural haematoma [Not Recovered/Not Resolved]

NARRATIVE: CASE EVENT DATE: 20210117
